FAERS Safety Report 6551825-8 (Version None)
Quarter: 2010Q1

REPORT INFORMATION
  Report Type: 
  Country: None (occurrence: None)
  Receive Date: 20100126
  Receipt Date: 20100122
  Transmission Date: 20100710
  Serious: Yes (Hospitalization)
  Sender: FDA-Public Use
  Company Number: GXKR2009DE09289

PATIENT
  Age: 82 Year
  Sex: Female
  Weight: 83 kg

DRUGS (5)
  1. IBUPROFEN (NGX) [Suspect]
     Indication: PAIN
     Dosage: 600 MG, QD
     Route: 048
     Dates: start: 20090727, end: 20090729
  2. IBUPROFEN (NGX) [Suspect]
     Dosage: 600 MG, BID
     Route: 048
     Dates: start: 20090707, end: 20090727
  3. ASS 100 HEXAL (NGX) [Suspect]
     Indication: THROMBOSIS PROPHYLAXIS
     Dosage: 100 MG, QD
     Route: 048
     Dates: start: 19920101
  4. BIPRETERAX [Concomitant]
     Indication: HYPERTENSION
     Dosage: 1 TABLET DAILY
     Route: 048
     Dates: start: 20030101
  5. PANTOPRAZOLE [Concomitant]
     Indication: PROPHYLAXIS AGAINST GASTROINTESTINAL ULCER
     Dosage: 20 MG, QD
     Route: 048
     Dates: start: 20090707

REACTIONS (1)
  - COLITIS [None]
